FAERS Safety Report 8912541 (Version 2)
Quarter: 2012Q4

REPORT INFORMATION
  Report Type: 
  Country: US (occurrence: US)
  Receive Date: 20121115
  Receipt Date: 20121206
  Transmission Date: 20130627
  Serious: No
  Sender: FDA-Public Use
  Company Number: US-PFIZER INC-2012281554

PATIENT
  Age: 70 Year
  Sex: Female
  Weight: 89.8 kg

DRUGS (2)
  1. ZYVOX [Suspect]
     Indication: ARTHRITIS INFECTIVE
     Dosage: 600 mg, daily
     Dates: start: 20121106, end: 20121107
  2. LISINOPRIL [Concomitant]
     Indication: BLOOD PRESSURE HIGH
     Dosage: 10 mg, daily

REACTIONS (4)
  - Inappropriate schedule of drug administration [Unknown]
  - Hypersensitivity [Recovering/Resolving]
  - Dermatitis [Recovering/Resolving]
  - Pruritus [Recovering/Resolving]
